FAERS Safety Report 8964112 (Version 2)
Quarter: 2013Q1

REPORT INFORMATION
  Report Type: Spontaneous
  Country: DE (occurrence: DE)
  Receive Date: 20121213
  Receipt Date: 20130313
  Transmission Date: 20140127
  Serious: Yes (Other)
  Sender: FDA-Public Use
  Company Number: DE-B.I. PHARMACEUTICALS,INC./RIDGEFIELD-2012-DE-02965DE

PATIENT
  Sex: Male
  Weight: 75 kg

DRUGS (5)
  1. PRADAXA [Suspect]
     Indication: ATRIAL FIBRILLATION
     Dosage: 220 MG
     Route: 048
     Dates: start: 201207, end: 201212
  2. PREDNISOLON [Concomitant]
     Indication: POLYARTHRITIS
     Dosage: 2.5 MG
     Route: 048
  3. PANTOZOL [Concomitant]
     Indication: GASTROOESOPHAGEAL REFLUX DISEASE
     Dosage: 20 MG
     Route: 048
  4. CARVEDILOL [Concomitant]
     Indication: HYPERTENSIVE HEART DISEASE
     Dosage: 6.25 MG
     Route: 048
  5. CARVEDILOL [Concomitant]
     Indication: CARDIAC FAILURE

REACTIONS (1)
  - Haemolytic anaemia [Recovered/Resolved]
